FAERS Safety Report 9531546 (Version 2)
Quarter: 2014Q1

REPORT INFORMATION
  Report Type: Spontaneous
  Country: DE (occurrence: DE)
  Receive Date: 20130918
  Receipt Date: 20140124
  Transmission Date: 20141002
  Serious: Yes (Hospitalization)
  Sender: FDA-Public Use
  Company Number: DE-B.I. PHARMACEUTICALS,INC./RIDGEFIELD-2013-BI-28552DE

PATIENT
  Age: 82 Year
  Sex: Male
  Weight: 89 kg

DRUGS (2)
  1. PRADAXA [Suspect]
     Indication: ATRIAL FIBRILLATION
     Dosage: 220 MG
     Dates: start: 201110, end: 20130907
  2. RAMIPRIL 5MG [Concomitant]
     Indication: HYPERTENSION

REACTIONS (5)
  - Fall [Not Recovered/Not Resolved]
  - Rib fracture [Not Recovered/Not Resolved]
  - Anal haemorrhage [Recovered/Resolved]
  - Constipation [Unknown]
  - Haemorrhage [Unknown]
